FAERS Safety Report 25005420 (Version 1)
Quarter: 2025Q1

REPORT INFORMATION
  Report Type: Other
  Country: IT (occurrence: None)
  Receive Date: 20250224
  Receipt Date: 20250224
  Transmission Date: 20250408
  Serious: Yes (Congenital Anomaly)
  Sender: INCYTE
  Company Number: None

PATIENT
  Age: 0 Year

DRUGS (2)
  1. RUXOLITINIB [Suspect]
     Active Substance: RUXOLITINIB
     Indication: Myelofibrosis
     Dosage: 20 MG, BID
  2. ASPIRIN [Concomitant]
     Active Substance: ASPIRIN
     Indication: Prophylaxis
     Dosage: 100 MG, QD (100 MG/DIE)

REACTIONS (1)
  - Congenital genitourinary abnormality [Not Recovered/Not Resolved]
